FAERS Safety Report 7686857-X (Version None)
Quarter: 2011Q3

REPORT INFORMATION
  Report Type: 
  Country: None (occurrence: None)
  Receive Date: 20110816
  Receipt Date: 20110811
  Transmission Date: 20111222
  Serious: Yes (Other)
  Sender: FDA-Public Use
  Company Number: IL-ROCHE-796530

PATIENT
  Sex: Male

DRUGS (1)
  1. AVASTIN [Suspect]
     Route: 042

REACTIONS (4)
  - VISUAL IMPAIRMENT [None]
  - COLD SWEAT [None]
  - DRUG HYPERSENSITIVITY [None]
  - STUPOR [None]
